FAERS Safety Report 8082420-X (Version None)
Quarter: 2012Q1

REPORT INFORMATION
  Report Type: 
  Country: None (occurrence: None)
  Receive Date: 20120127
  Receipt Date: 20110315
  Transmission Date: 20120608
  Serious: No
  Sender: FDA-Public Use
  Company Number: US-ABBOTT-11P-163-0706210-00

PATIENT
  Age: 60 Year
  Sex: Female

DRUGS (4)
  1. ACETAMINOPHEN [Concomitant]
     Indication: PRODUCT USED FOR UNKNOWN INDICATION
  2. HUMIRA [Suspect]
     Indication: CROHN'S DISEASE
     Dates: start: 20110112
  3. SANDOSTATIN [Concomitant]
     Indication: ABNORMAL FAECES
  4. SIMVASTATIN [Concomitant]
     Indication: PRODUCT USED FOR UNKNOWN INDICATION

REACTIONS (6)
  - DYSURIA [None]
  - HAEMOGLOBIN DECREASED [None]
  - IRON DEFICIENCY [None]
  - FATIGUE [None]
  - POLLAKIURIA [None]
  - INJECTION SITE PAIN [None]
